FAERS Safety Report 4811702-7 (Version None)
Quarter: 2005Q4

REPORT INFORMATION
  Report Type: 
  Country: None (occurrence: None)
  Receive Date: 20051025
  Receipt Date: 20051017
  Transmission Date: 20060501
  Serious: Yes (Other)
  Sender: FDA-Public Use
  Company Number: 2005143365

PATIENT
  Sex: Female

DRUGS (2)
  1. ZARONTIN [Suspect]
     Indication: EPILEPSY
  2. PHENOBARBITAL TAB [Concomitant]

REACTIONS (2)
  - DRUG INEFFECTIVE [None]
  - EPILEPSY [None]
